FAERS Safety Report 7537371-3 (Version None)
Quarter: 2011Q2

REPORT INFORMATION
  Report Type: 
  Country: None (occurrence: None)
  Receive Date: 20110603
  Receipt Date: 20110518
  Transmission Date: 20111010
  Serious: Yes (Hospitalization)
  Sender: FDA-Public Use
  Company Number: 2011MA006076

PATIENT
  Age: 22 Year
  Sex: Male

DRUGS (1)
  1. RISPERIDONE [Suspect]
     Indication: SEXUALLY INAPPROPRIATE BEHAVIOUR
     Dosage: 1 MG;QD

REACTIONS (8)
  - HAEMATEMESIS [None]
  - GASTRODUODENAL ULCER [None]
  - AGGRESSION [None]
  - DISEASE RECURRENCE [None]
  - SEXUALLY INAPPROPRIATE BEHAVIOUR [None]
  - BARRETT'S OESOPHAGUS [None]
  - MELAENA [None]
  - BLOOD PROLACTIN INCREASED [None]
